FAERS Safety Report 13260927 (Version 1)
Quarter: 2017Q1

REPORT INFORMATION
  Report Type: Spontaneous
  Country: US (occurrence: US)
  Receive Date: 20170222
  Receipt Date: 20170222
  Transmission Date: 20170428
  Serious: No
  Sender: FDA-Public Use
  Company Number: US-SA-2016SA227253

PATIENT
  Age: 53 Year
  Sex: Female

DRUGS (1)
  1. DIABETA [Suspect]
     Active Substance: GLYBURIDE
     Route: 065
     Dates: start: 20161208

REACTIONS (3)
  - Dry mouth [Not Recovered/Not Resolved]
  - Mass [Not Recovered/Not Resolved]
  - Blood glucose increased [Not Recovered/Not Resolved]

NARRATIVE: CASE EVENT DATE: 20161208
